FAERS Safety Report 8934510 (Version 1)
Quarter: 2012Q4

REPORT INFORMATION
  Report Type: 
  Country: US (occurrence: US)
  Receive Date: 20121129
  Receipt Date: 20121129
  Transmission Date: 20130627
  Serious: No
  Sender: FDA-Public Use
  Company Number: US-GLAXOSMITHKLINE-A0961609A

PATIENT
  Age: 79 Year

DRUGS (6)
  1. FLOVENT [Suspect]
     Indication: ASTHMA
     Dosage: 1PUFF Twice per day
     Route: 055
     Dates: start: 201104
  2. TARKA [Concomitant]
  3. LIPITOR [Concomitant]
  4. ASPIRIN [Concomitant]
  5. VITAMINS [Concomitant]
  6. ALBUTEROL INHALER [Concomitant]

REACTIONS (5)
  - Drug ineffective [Unknown]
  - Inhalation therapy [Unknown]
  - Cough [Unknown]
  - Wheezing [Unknown]
  - Product quality issue [Unknown]
